FAERS Safety Report 16716260 (Version 1)
Quarter: 2019Q4

REPORT INFORMATION
  Report Type: Spontaneous
  Country: US (occurrence: US)
  Receive Date: 20190818
  Receipt Date: 20190818
  Transmission Date: 20200122
  Serious: Yes (Other)
  Sender: FDA-Public Use
  Company Number: None

PATIENT
  Age: 54 Year
  Sex: Male
  Weight: 94.95 kg

DRUGS (7)
  1. ALLOPURINOL. [Concomitant]
     Active Substance: ALLOPURINOL
  2. ACTAVIS TESTOSTERONE GEL 1% 2.5 GRAMS PER UNIT DISE [Suspect]
     Active Substance: TESTOSTERONE
     Indication: HYPOGONADISM
     Dosage: ?          QUANTITY:30 PACKET;?
     Route: 061
     Dates: start: 20190705, end: 20190805
  3. ZOCOR [Concomitant]
     Active Substance: SIMVASTATIN
  4. TYLENOL WITH CODEINE [Concomitant]
     Active Substance: ACETAMINOPHEN\CODEINE PHOSPHATE
  5. MYRBETRIQ [Concomitant]
     Active Substance: MIRABEGRON
  6. GABAPENTIN. [Concomitant]
     Active Substance: GABAPENTIN
  7. CYMBALTA [Concomitant]
     Active Substance: DULOXETINE HYDROCHLORIDE

REACTIONS (4)
  - Depression [None]
  - Crying [None]
  - Suicidal ideation [None]
  - Feeling of despair [None]

NARRATIVE: CASE EVENT DATE: 20190708
